FAERS Safety Report 15593236 (Version 9)
Quarter: 2023Q1

REPORT INFORMATION
  Report Type: Report from Study
  Country: FR (occurrence: FR)
  Receive Date: 20181106
  Receipt Date: 20230320
  Transmission Date: 20230418
  Serious: Yes (Hospitalization, Other)
  Sender: FDA-Public Use
  Company Number: PHHY2018FR145666

PATIENT
  Age: 67 Year
  Sex: Female
  Weight: 85 kg

DRUGS (10)
  1. COSENTYX [Suspect]
     Active Substance: SECUKINUMAB
     Indication: Psoriatic arthropathy
     Dosage: 300 MG, QW
     Route: 065
     Dates: start: 20170113, end: 20170210
  2. COSENTYX [Suspect]
     Active Substance: SECUKINUMAB
     Dosage: 300 MG
     Route: 065
     Dates: start: 20170211, end: 20180410
  3. COSENTYX [Suspect]
     Active Substance: SECUKINUMAB
     Dosage: 0 MG (INTERMEDIATE TREATMENT BREAK)
     Route: 065
     Dates: start: 20180212, end: 20180410
  4. COSENTYX [Suspect]
     Active Substance: SECUKINUMAB
     Dosage: 150 MG
     Route: 065
     Dates: start: 20180411
  5. COSENTYX [Suspect]
     Active Substance: SECUKINUMAB
     Dosage: UNK
     Route: 065
  6. COSENTYX [Suspect]
     Active Substance: SECUKINUMAB
     Dosage: UNK
     Route: 065
  7. COSENTYX [Suspect]
     Active Substance: SECUKINUMAB
     Dosage: 300 MG, QMO (EVERY 4 WEEKS)
     Route: 058
  8. COSENTYX [Suspect]
     Active Substance: SECUKINUMAB
     Dosage: 300 MG
     Route: 065
     Dates: start: 20180411, end: 20211212
  9. COSENTYX [Suspect]
     Active Substance: SECUKINUMAB
     Dosage: 0 MG (INTERMEDIATE TREATMENT BREAK)
     Route: 065
     Dates: start: 20211213, end: 20220221
  10. COSENTYX [Suspect]
     Active Substance: SECUKINUMAB
     Dosage: 300 MG
     Route: 065
     Dates: start: 20220222, end: 20221122

REACTIONS (9)
  - Diverticulitis [Recovered/Resolved]
  - Bowen^s disease [Not Recovered/Not Resolved]
  - Cataract [Recovered/Resolved]
  - Migraine [Recovered/Resolved]
  - Headache [Recovered/Resolved]
  - Fibula fracture [Recovered/Resolved]
  - Tracheitis [Recovered/Resolved]
  - Bronchitis [Recovered/Resolved]
  - Nasal septum deviation [Recovered/Resolved]

NARRATIVE: CASE EVENT DATE: 20180111
